FAERS Safety Report 8804368 (Version 2)
Quarter: 2012Q4

REPORT INFORMATION
  Report Type: 
  Country: US (occurrence: US)
  Receive Date: 20120924
  Receipt Date: 20121119
  Transmission Date: 20130627
  Serious: Yes (Hospitalization)
  Sender: FDA-Public Use
  Company Number: US-BAYER-2012-098013

PATIENT
  Age: 19 Year
  Sex: Female
  Weight: 65.76 kg

DRUGS (7)
  1. YAZ [Suspect]
  2. YASMIN [Suspect]
  3. OCELLA [Suspect]
  4. CLINDAMYCIN [Concomitant]
     Dosage: 1 %, UNK
     Route: 061
  5. AMOXICILLIN [Concomitant]
     Dosage: 500 mg, UNK
     Route: 048
  6. FLUCONAZOLE [Concomitant]
     Dosage: 150 mg, UNK
     Route: 048
  7. PROMETHAZINE [Concomitant]
     Dosage: 25 mg, UNK
     Route: 048

REACTIONS (2)
  - Injury [None]
  - Basal ganglia stroke [None]
